FAERS Safety Report 16635931 (Version 1)
Quarter: 2019Q3

REPORT INFORMATION
  Report Type: Spontaneous
  Country: US (occurrence: US)
  Receive Date: 20190725
  Receipt Date: 20190725
  Transmission Date: 20191004
  Serious: No
  Sender: FDA-Public Use
  Company Number: None

PATIENT
  Age: 55 Year
  Sex: Male
  Weight: 90 kg

DRUGS (2)
  1. NEXIUM 24HR [Suspect]
     Active Substance: ESOMEPRAZOLE MAGNESIUM
     Indication: DYSPEPSIA
     Dosage: ?          QUANTITY:2 CAPSULE(S);?
     Route: 048
     Dates: start: 20190722, end: 20190725
  2. COMPLETER FOR MEN 50+ VITAMINS [Concomitant]

REACTIONS (6)
  - Insomnia [None]
  - Anxiety [None]
  - Tachyphrenia [None]
  - Muscle twitching [None]
  - Flushing [None]
  - Palpitations [None]

NARRATIVE: CASE EVENT DATE: 20190725
